FAERS Safety Report 4517309-3 (Version None)
Quarter: 2004Q4

REPORT INFORMATION
  Report Type: 
  Country: None (occurrence: None)
  Receive Date: 20041008
  Receipt Date: 20040616
  Transmission Date: 20050328
  Serious: No
  Sender: FDA-Public Use
  Company Number: 2004S1000130

PATIENT
  Age: 48 Year
  Sex: Male

DRUGS (3)
  1. CUBICIN [Suspect]
     Indication: STAPHYLOCOCCAL INFECTION
     Dosage: 320 MG; Q24H; IV
     Route: 042
     Dates: start: 20040606
  2. CLONIDINE [Concomitant]
  3. AMLODIPINE [Concomitant]

REACTIONS (1)
  - BLOOD CREATININE INCREASED [None]
